FAERS Safety Report 4748230-3 (Version None)
Quarter: 2005Q3

REPORT INFORMATION
  Report Type: 
  Country: None (occurrence: None)
  Receive Date: 20050815
  Receipt Date: 20050803
  Transmission Date: 20060218
  Serious: Yes (Hospitalization)
  Sender: FDA-Public Use
  Company Number: 27163

PATIENT
  Age: 80 Year
  Sex: Male

DRUGS (10)
  1. DISCOTRINE (GLYCERYL TRINITRATE) [Suspect]
     Indication: ANGINA PECTORIS
     Dosage: TRANSDERMAL
     Route: 062
     Dates: end: 20040630
  2. MODOPAR (LEVODOPA, BENSERAZIDE HYDROCHLORIDE) [Suspect]
     Indication: PARKINSON'S DISEASE
     Dosage: ORAL
     Route: 048
     Dates: end: 20040630
  3. NAPROSYN [Suspect]
     Dosage: ORAL
     Route: 048
     Dates: start: 20040628, end: 20040630
  4. VASTAREL (TRIMETAZIDINE HYDROCHLORIDE) [Suspect]
     Indication: ANGINA PECTORIS
     Dosage: ORAL
     Dates: end: 20040630
  5. KARDEGIC (ACETYLSALICYLATE LYSINE) [Suspect]
     Indication: ANGINA PECTORIS
     Dosage: ORAL
     Route: 048
     Dates: end: 20040630
  6. CHLORHYDRATE D'AMIODARONE (AMIODARONE HYDROCHLORIDE) [Suspect]
     Indication: ATRIAL FIBRILLATION
     Dosage: ORAL
     Route: 048
     Dates: end: 20040630
  7. CHLORHYDRATE D'AMIODARONE (AMIODARONE HYDROCHLORIDE) [Suspect]
     Indication: ATRIAL FLUTTER
     Dosage: ORAL
     Route: 048
     Dates: end: 20040630
  8. LANSOPRAZOLE [Concomitant]
  9. PIASCLEDINE (AVOCADO OIL, SOYA OIL) [Concomitant]
  10. MEDROL [Concomitant]

REACTIONS (18)
  - ABDOMINAL PAIN UPPER [None]
  - ATRIAL FIBRILLATION [None]
  - ATRIAL FLUTTER [None]
  - BLOOD PRESSURE DIASTOLIC DECREASED [None]
  - DYSPNOEA [None]
  - ESCHERICHIA INFECTION [None]
  - HAEMODIALYSIS [None]
  - LACTIC ACIDOSIS [None]
  - NAUSEA [None]
  - NON-CARDIOGENIC PULMONARY OEDEMA [None]
  - OLIGURIA [None]
  - RENAL DISORDER [None]
  - RENAL FAILURE ACUTE [None]
  - SEPTIC SHOCK [None]
  - ULTRASOUND SCAN ABNORMAL [None]
  - URINARY TRACT INFECTION [None]
  - VOMITING [None]
  - WHITE BLOOD CELL COUNT INCREASED [None]
